FAERS Safety Report 8447830-7 (Version None)
Quarter: 2012Q2

REPORT INFORMATION
  Report Type: 
  Country: None (occurrence: None)
  Receive Date: 20120612
  Receipt Date: 20120530
  Transmission Date: 20120825
  Serious: Yes (Other)
  Sender: FDA-Public Use
  Company Number: ADR-2012-00871

PATIENT
  Sex: Female

DRUGS (2)
  1. LIORESAL [Suspect]
     Indication: MULTIPLE SCLEROSIS
  2. LIORESAL [Suspect]
     Indication: MUSCLE SPASTICITY

REACTIONS (11)
  - MOBILITY DECREASED [None]
  - MUSCLE SPASMS [None]
  - STRESS [None]
  - DEVICE INEFFECTIVE [None]
  - VIRAL INFECTION [None]
  - HYPOAESTHESIA [None]
  - FEELING ABNORMAL [None]
  - HYPOTONIA [None]
  - PERONEAL NERVE PALSY [None]
  - SENSATION OF HEAVINESS [None]
  - CELLULITIS [None]
